FAERS Safety Report 14169523 (Version 1)
Quarter: 2017Q4

REPORT INFORMATION
  Report Type: Spontaneous
  Country: US (occurrence: US)
  Receive Date: 20171107
  Receipt Date: 20171107
  Transmission Date: 20180321
  Serious: No
  Sender: FDA-Public Use
  Company Number: None

PATIENT
  Age: 35 Year
  Sex: Male
  Weight: 90 kg

DRUGS (2)
  1. METHYLPHENIDATE HYDROCHLORIDE. [Concomitant]
     Active Substance: METHYLPHENIDATE HYDROCHLORIDE
  2. METHYLPHENIDATE ER, TAB 36MG ( [Suspect]
     Active Substance: METHYLPHENIDATE
     Dosage: ?          QUANTITY:1 TABLET(S);?
     Route: 048
     Dates: start: 20171005, end: 20171031

REACTIONS (5)
  - Feeling jittery [None]
  - Discomfort [None]
  - Drug effect variable [None]
  - Feeling hot [None]
  - Product substitution issue [None]

NARRATIVE: CASE EVENT DATE: 20171018
